FAERS Safety Report 21325846 (Version 1)
Quarter: 2022Q3

REPORT INFORMATION
  Report Type: Spontaneous
  Country: US (occurrence: US)
  Receive Date: 20220913
  Receipt Date: 20220913
  Transmission Date: 20221027
  Serious: Yes (Hospitalization)
  Sender: FDA-Public Use
  Company Number: US-BRISTOL-MYERS SQUIBB COMPANY-2022-104472

PATIENT
  Age: 62 Year
  Sex: Male

DRUGS (14)
  1. REVLIMID [Suspect]
     Active Substance: LENALIDOMIDE
     Indication: Plasma cell myeloma
     Dosage: FOR 21 DAYS OUT OF 28 DAYS
     Route: 048
     Dates: start: 20220125
  2. DEXAMETHASONE [Concomitant]
     Active Substance: DEXAMETHASONE
     Indication: Product used for unknown indication
     Route: 065
  3. GABAPENTIN [Concomitant]
     Active Substance: GABAPENTIN
     Indication: Product used for unknown indication
     Route: 065
  4. HYDROXYZINE POW HCL [Concomitant]
     Indication: Product used for unknown indication
     Route: 065
  5. LOVENOX INJ 40/0.4ML [Concomitant]
     Indication: Product used for unknown indication
     Route: 065
  6. MELATONIN [Concomitant]
     Active Substance: MELATONIN
     Indication: Product used for unknown indication
     Route: 065
  7. MIRALAX POW 3350 NF [Concomitant]
     Indication: Product used for unknown indication
     Route: 065
  8. MYLICON DRO 20/0.3M [Concomitant]
     Indication: Product used for unknown indication
     Route: 065
  9. OXYCODONE TAB 10MG ER [Concomitant]
     Indication: Product used for unknown indication
     Route: 065
  10. OXYCONTIN TAB 10MG CR [Concomitant]
     Indication: Product used for unknown indication
     Route: 065
  11. PROCHLORPER TAB 10MG [Concomitant]
     Indication: Product used for unknown indication
     Route: 065
  12. TYLENOL TAB 500MG [Concomitant]
     Indication: Product used for unknown indication
     Route: 065
  13. VALTREX TAB 500MG [Concomitant]
     Indication: Product used for unknown indication
     Route: 065
  14. ZOLOFT TAB 100MG [Concomitant]
     Indication: Product used for unknown indication
     Route: 065

REACTIONS (1)
  - Adverse event [Unknown]
